FAERS Safety Report 9936929 (Version 2)
Quarter: 2014Q2

REPORT INFORMATION
  Report Type: Spontaneous
  Country: US (occurrence: None)
  Receive Date: 20140115
  Receipt Date: 20140411
  Transmission Date: 20141212
  Serious: No
  Sender: FDA-Public Use
  Company Number: 2013US002835

PATIENT
  Age: 67 Year
  Sex: Female
  Weight: 53 kg

DRUGS (8)
  1. ICLUSIG [Suspect]
     Indication: LEUKAEMIA
     Route: 048
     Dates: start: 201305, end: 201306
  2. GABAPENTIN (GABAPENTIN) [Concomitant]
  3. VITAMIN D (VITAMIN D) [Concomitant]
  4. AMLODIPINE (AMLODIPINE) [Concomitant]
  5. LISINOPRIL (LISINOPRIL) [Concomitant]
  6. ALLOPURINOL (ALLOPURINOL) [Concomitant]
  7. CARVEDILOL [Concomitant]
  8. ASA [Suspect]
     Indication: PRODUCT USED FOR UNKNOWN INDICATION

REACTIONS (4)
  - Skin exfoliation [None]
  - Dry skin [None]
  - Rash [None]
  - Gastrointestinal ulcer [None]
